FAERS Safety Report 5607525-1 (Version None)
Quarter: 2008Q1

REPORT INFORMATION
  Report Type: 
  Country: None (occurrence: None)
  Receive Date: 20080130
  Receipt Date: 20080124
  Transmission Date: 20080703
  Serious: Yes (Life-Threatening)
  Sender: FDA-Public Use
  Company Number: PHHO2008CA01421

PATIENT
  Age: 55 Year
  Sex: Male
  Weight: 97 kg

DRUGS (3)
  1. ALISKIREN ALI+TAB+HT [Suspect]
     Indication: ESSENTIAL HYPERTENSION
     Dosage: 300 MG / DAY
     Route: 048
     Dates: start: 20061107, end: 20080119
  2. VALSARTAN [Suspect]
     Indication: ESSENTIAL HYPERTENSION
     Dosage: 320 MG / DAY
     Route: 048
     Dates: start: 20061107, end: 20080119
  3. ESIDRIX [Suspect]
     Indication: ESSENTIAL HYPERTENSION
     Dosage: 25 MG / DAY
     Route: 048
     Dates: end: 20080119

REACTIONS (4)
  - ALANINE AMINOTRANSFERASE INCREASED [None]
  - ASPARTATE AMINOTRANSFERASE INCREASED [None]
  - DIZZINESS [None]
  - PAIN [None]
